FAERS Safety Report 4976217-4 (Version None)
Quarter: 2006Q2

REPORT INFORMATION
  Report Type: 
  Country: None (occurrence: None)
  Receive Date: 20060419
  Receipt Date: 20060403
  Transmission Date: 20061013
  Serious: Yes (Other)
  Sender: FDA-Public Use
  Company Number: PHEH2006US04345

PATIENT
  Age: 53 Year
  Sex: Female

DRUGS (13)
  1. HERCEPTIN [Concomitant]
     Indication: BREAST CANCER
     Dosage: 190 MG, WEEKLY
     Dates: start: 20040519
  2. AROMASIN [Concomitant]
     Indication: BREAST CANCER
     Dosage: 25 MG, DAILY
     Dates: start: 20031003
  3. WARFARIN SODIUM [Concomitant]
     Indication: PULMONARY EMBOLISM
     Dosage: 3 MG ALTERNATING WITH 4 MG
     Dates: start: 20020101
  4. WARFARIN SODIUM [Concomitant]
     Dosage: 4 MG ALTERNATING WITH 3 MG
  5. NEXIUM [Concomitant]
  6. LORATADINE W/PSEUDOEPHEDRINE [Concomitant]
  7. ZOMETA [Suspect]
     Indication: BREAST CANCER METASTATIC
     Dosage: MONTHLY
     Dates: start: 20011219, end: 20060118
  8. ATORVASTATIN CALCIUM [Concomitant]
  9. PREVACID [Concomitant]
  10. CALCIUM GLUCONATE [Concomitant]
  11. DILAUDID [Concomitant]
  12. DURAGESIC-100 [Concomitant]
     Dosage: 100 MG, UNK
     Route: 062
  13. QUININE [Concomitant]

REACTIONS (9)
  - CONSTIPATION [None]
  - DENTAL CARIES [None]
  - ENAMEL ANOMALY [None]
  - OSTEONECROSIS [None]
  - PELVIC PAIN [None]
  - PULMONARY EMBOLISM [None]
  - RECTAL HAEMORRHAGE [None]
  - TOOTHACHE [None]
  - VAGINAL HAEMORRHAGE [None]
